FAERS Safety Report 12659754 (Version 1)
Quarter: 2016Q3

REPORT INFORMATION
  Report Type: Spontaneous
  Country: US (occurrence: US)
  Receive Date: 20160817
  Receipt Date: 20160817
  Transmission Date: 20161109
  Serious: No
  Sender: FDA-Public Use
  Company Number: US-BAYER-2016-159955

PATIENT
  Age: 83 Year
  Sex: Female
  Weight: 58.96 kg

DRUGS (3)
  1. MIRALAX [Suspect]
     Active Substance: POLYETHYLENE GLYCOL 3350
     Indication: CONSTIPATION
     Dosage: 1 DF, QD
     Route: 048
     Dates: start: 201608
  2. APIXABAN [Concomitant]
     Active Substance: APIXABAN
  3. PACERONE [Concomitant]
     Active Substance: AMIODARONE HYDROCHLORIDE

REACTIONS (3)
  - Diarrhoea [None]
  - Expired product administered [None]
  - Product use issue [None]

NARRATIVE: CASE EVENT DATE: 201608
